FAERS Safety Report 5408314-3 (Version None)
Quarter: 2007Q3

REPORT INFORMATION
  Report Type: 
  Country: None (occurrence: None)
  Receive Date: 20070803
  Receipt Date: 20070723
  Transmission Date: 20080115
  Serious: No
  Sender: FDA-Public Use
  Company Number: 2007-02291

PATIENT
  Age: 1 Year
  Sex: 0

DRUGS (1)
  1. VELCADE [Suspect]
     Indication: LEUKAEMIA PLASMACYTIC

REACTIONS (1)
  - NO ADVERSE DRUG REACTION [None]
